FAERS Safety Report 8105835-X (Version None)
Quarter: 2012Q1

REPORT INFORMATION
  Report Type: 
  Country: None (occurrence: None)
  Receive Date: 20120201
  Receipt Date: 20120119
  Transmission Date: 20120608
  Serious: Yes (Other)
  Sender: FDA-Public Use
  Company Number: DE-AMGEN-DEUSP2011060582

PATIENT
  Age: 24 Year
  Sex: Male

DRUGS (3)
  1. ENBREL [Suspect]
     Dosage: 50 MG, WEEKLY
     Dates: start: 20110712, end: 20111108
  2. ENBREL [Suspect]
     Indication: PSORIATIC ARTHROPATHY
     Dosage: 50 MG, 2X/WEEK
     Dates: end: 20110711
  3. ENBREL [Suspect]
     Dosage: UNK
     Dates: start: 20120109

REACTIONS (2)
  - SARCOIDOSIS [None]
  - PNEUMONIA [None]
